FAERS Safety Report 10568673 (Version 3)
Quarter: 2015Q1

REPORT INFORMATION
  Report Type: Spontaneous
  Country: US (occurrence: US)
  Receive Date: 20141106
  Receipt Date: 20150126
  Transmission Date: 20150720
  Serious: Yes (Hospitalization, Other)
  Sender: FDA-Public Use
  Company Number: US-GLAXOSMITHKLINE-US2014GSK017631

PATIENT
  Sex: Female

DRUGS (14)
  1. PHENYTOINE [Suspect]
     Active Substance: PHENYTOIN
     Indication: SEIZURE
  2. INSULIN [Concomitant]
     Active Substance: INSULIN NOS
  3. PHENOBARBITAL. [Suspect]
     Active Substance: PHENOBARBITAL
     Dosage: LESS THAN 100 MG
  4. LANTUS [Concomitant]
     Active Substance: INSULIN GLARGINE
  5. LAMOTRIGINE. [Suspect]
     Active Substance: LAMOTRIGINE
     Indication: SEIZURE
  6. PHENOBARBITAL. [Suspect]
     Active Substance: PHENOBARBITAL
     Indication: SEIZURE
     Dosage: UNK
  7. DILANTIN [Suspect]
     Active Substance: PHENYTOIN
     Dosage: 100 MG, U
  8. DILANTIN [Suspect]
     Active Substance: PHENYTOIN
     Dosage: 400 MG, UNK
  9. LAMOTRIGINE PROLONGED-RELEASE TABLET [Suspect]
     Active Substance: LAMOTRIGINE
     Indication: SEIZURE
     Dosage: 250 MG, BID
     Route: 048
  10. LAMICTAL [Suspect]
     Active Substance: LAMOTRIGINE
     Indication: SEIZURE
  11. COUMADIN [Concomitant]
     Active Substance: WARFARIN SODIUM
  12. DIOVAN [Concomitant]
     Active Substance: VALSARTAN
  13. SIMVASTATIN. [Concomitant]
     Active Substance: SIMVASTATIN
  14. NOVOLOG [Concomitant]
     Active Substance: INSULIN ASPART

REACTIONS (4)
  - Drug ineffective [Not Recovered/Not Resolved]
  - Seizure [Recovered/Resolved]
  - Urticaria [Not Recovered/Not Resolved]
  - Incontinence [Unknown]

NARRATIVE: CASE EVENT DATE: 2000
